FAERS Safety Report 18509761 (Version 1)
Quarter: 2020Q4

REPORT INFORMATION
  Report Type: Spontaneous
  Country: US (occurrence: US)
  Receive Date: 20201113
  Receipt Date: 20201113
  Transmission Date: 20210114
  Serious: Yes (Hospitalization)
  Sender: FDA-Public Use
  Company Number: None

PATIENT
  Age: 48 Year
  Sex: Female

DRUGS (1)
  1. VERZENIO [Suspect]
     Active Substance: ABEMACICLIB
     Route: 048
     Dates: start: 202007

REACTIONS (7)
  - Dizziness [None]
  - Diarrhoea [None]
  - Chromaturia [None]
  - Heart rate increased [None]
  - Malignant neoplasm progression [None]
  - Haemoglobin decreased [None]
  - Muscle spasms [None]

NARRATIVE: CASE EVENT DATE: 20201103
